FAERS Safety Report 8362032 (Version 3)
Quarter: 2015Q2

REPORT INFORMATION
  Report Type: Report from Study
  Country: US (occurrence: US)
  Receive Date: 20120130
  Receipt Date: 20150626
  Transmission Date: 20150821
  Serious: Yes (Death)
  Sender: FDA-Public Use
  Company Number: US-ROCHE-1033569

PATIENT
  Age: 86 Year
  Sex: Female

DRUGS (3)
  1. ZYMAR [Concomitant]
     Active Substance: GATIFLOXACIN
     Dosage: TID FOR 3 DAYS
     Route: 065
  2. LUCENTIS [Suspect]
     Active Substance: RANIBIZUMAB
     Indication: DIABETIC RETINOPATHY
     Route: 050
  3. TETRAVISC [Concomitant]
     Active Substance: TETRACAINE HYDROCHLORIDE

REACTIONS (6)
  - Visual acuity reduced [Unknown]
  - Off label use [Unknown]
  - Diabetes mellitus [Fatal]
  - Cardiac failure congestive [Fatal]
  - Asthenopia [Unknown]
  - Malaise [Unknown]

NARRATIVE: CASE EVENT DATE: 20100309
